FAERS Safety Report 4631156-3 (Version None)
Quarter: 2005Q2

REPORT INFORMATION
  Report Type: 
  Country: None (occurrence: None)
  Receive Date: 20050407
  Receipt Date: 20050407
  Transmission Date: 20051028
  Serious: No
  Sender: FDA-Public Use
  Company Number: None

PATIENT
  Age: 27 Year
  Sex: Female
  Weight: 126.1 kg

DRUGS (2)
  1. WELLBUTRIN XL [Suspect]
     Indication: ANXIETY
     Dosage: 300 MG ONCE DAILY ORAL
     Route: 048
     Dates: start: 20030901, end: 20050406
  2. WELLBUTRIN XL [Suspect]
     Indication: DEPRESSION
     Dosage: 300 MG ONCE DAILY ORAL
     Route: 048
     Dates: start: 20030901, end: 20050406

REACTIONS (6)
  - DEPRESSION [None]
  - FEELING ABNORMAL [None]
  - PAIN [None]
  - PANIC ATTACK [None]
  - PHARMACEUTICAL PRODUCT COMPLAINT [None]
  - TREMOR [None]
